FAERS Safety Report 5741566-9 (Version None)
Quarter: 2008Q2

REPORT INFORMATION
  Report Type: 
  Country: None (occurrence: None)
  Receive Date: 20080519
  Receipt Date: 20080401
  Transmission Date: 20081010
  Serious: Yes (Hospitalization)
  Sender: FDA-Public Use
  Company Number: TW-BAYER-200816010GPV

PATIENT
  Age: 52 Year
  Sex: Female

DRUGS (4)
  1. ASPIRIN [Suspect]
     Indication: CEREBROVASCULAR ACCIDENT PROPHYLAXIS
  2. NATTOKINASE [Suspect]
     Indication: CEREBROVASCULAR ACCIDENT PROPHYLAXIS
  3. ANTIHYPERTENSIVE AGENTS [Concomitant]
     Indication: ESSENTIAL HYPERTENSION
  4. ANTIPARKINSONIAN AGENTS [Concomitant]
     Indication: PARKINSONISM

REACTIONS (4)
  - CEREBELLAR HAEMORRHAGE [None]
  - CEREBRAL HAEMORRHAGE [None]
  - GAIT DISTURBANCE [None]
  - VERTIGO [None]
